FAERS Safety Report 6923841-5 (Version None)
Quarter: 2010Q3

REPORT INFORMATION
  Report Type: 
  Country: None (occurrence: None)
  Receive Date: 20100813
  Receipt Date: 20090908
  Transmission Date: 20110219
  Serious: No
  Sender: FDA-Public Use
  Company Number: US-BRISTOL-MYERS SQUIBB COMPANY-14769897

PATIENT
  Age: 54 Year
  Sex: Male
  Weight: 111 kg

DRUGS (6)
  1. REYATAZ [Suspect]
     Indication: HIV INFECTION
     Dosage: INITIAL DOSE 200 MG QD; TAKEN FOR ABOUT 17 MONTHS.
  2. VIRAMUNE [Suspect]
  3. TRIZIVIR [Suspect]
  4. AVAPRO [Concomitant]
  5. ATENOLOL [Concomitant]
  6. LIPITOR [Concomitant]

REACTIONS (3)
  - INFLUENZA LIKE ILLNESS [None]
  - LIPODYSTROPHY ACQUIRED [None]
  - NEURALGIA [None]
